FAERS Safety Report 20116950 (Version 1)
Quarter: 2021Q4

REPORT INFORMATION
  Report Type: Spontaneous
  Country: US (occurrence: US)
  Receive Date: 20211126
  Receipt Date: 20211126
  Transmission Date: 20220303
  Serious: No
  Sender: FDA-Public Use
  Company Number: US-PURDUE PHARMA-USA-2021-0266137

PATIENT
  Sex: Female

DRUGS (4)
  1. MORPHINE SULFATE [Suspect]
     Active Substance: MORPHINE SULFATE
     Indication: Pain
     Dosage: 60 MG, TID
     Route: 048
  2. MORPHINE SULFATE [Suspect]
     Active Substance: MORPHINE SULFATE
     Indication: Breakthrough pain
     Dosage: 30 MG, TID
     Route: 048
  3. OXYCODONE HYDROCHLORIDE [Suspect]
     Active Substance: OXYCODONE HYDROCHLORIDE
     Indication: Pain
     Dosage: 15 MG, BID
     Route: 048
  4. MORPHINE [Suspect]
     Active Substance: MORPHINE
     Indication: Breakthrough pain
     Dosage: 10 MG, BID
     Route: 048

REACTIONS (3)
  - Heart rate increased [Recovered/Resolved]
  - Tinnitus [Unknown]
  - Somnolence [Unknown]
